FAERS Safety Report 23696639 (Version 1)
Quarter: 2024Q2

REPORT INFORMATION
  Report Type: Report from Study
  Country: TH (occurrence: TH)
  Receive Date: 20240402
  Receipt Date: 20240402
  Transmission Date: 20240716
  Serious: Yes (Hospitalization, Other)
  Sender: FDA-Public Use
  Company Number: TH-002147023-NVSC2022TH196869

PATIENT
  Sex: Female

DRUGS (1)
  1. KISQALI [Suspect]
     Active Substance: RIBOCICLIB
     Indication: Breast cancer metastatic
     Dosage: 200 MG, UNKNOWN
     Route: 048

REACTIONS (8)
  - Hepatitis [Unknown]
  - Pyrexia [Unknown]
  - Jaundice [Unknown]
  - Breast cancer metastatic [Unknown]
  - Malignant neoplasm progression [Unknown]
  - Metastases to liver [Unknown]
  - Liver function test increased [Unknown]
  - Therapeutic product effect incomplete [Unknown]
